FAERS Safety Report 8830608 (Version 1)
Quarter: 2012Q4

REPORT INFORMATION
  Report Type: 
  Country: US (occurrence: US)
  Receive Date: 20121008
  Receipt Date: 20121008
  Transmission Date: 20130627
  Serious: No
  Sender: FDA-Public Use
  Company Number: US-009507513-1210USA002282

PATIENT
  Sex: Male

DRUGS (4)
  1. DULERA [Suspect]
     Indication: CHRONIC OBSTRUCTIVE PULMONARY DISEASE
     Dosage: 5 Microgram, bid
     Route: 045
     Dates: start: 20120531
  2. ALLERGY RELIEF MEDICINE [Concomitant]
     Indication: HYPERSENSITIVITY
  3. THYROID [Concomitant]
     Indication: THYROID DISORDER
  4. CHOLESTEROL [Concomitant]
     Indication: BLOOD CHOLESTEROL

REACTIONS (1)
  - Drug ineffective [Unknown]
